FAERS Safety Report 21459589 (Version 2)
Quarter: 2022Q4

REPORT INFORMATION
  Report Type: Report from Study
  Country: US (occurrence: US)
  Receive Date: 20221014
  Receipt Date: 20221124
  Transmission Date: 20230113
  Serious: No
  Sender: FDA-Public Use
  Company Number: US-ABBVIE-4144986

PATIENT
  Sex: Female
  Weight: 66.224 kg

DRUGS (4)
  1. SYNTHROID [Suspect]
     Active Substance: LEVOTHYROXINE SODIUM
     Indication: Product used for unknown indication
     Route: 048
     Dates: start: 2001, end: 202210
  2. SYNTHROID [Suspect]
     Active Substance: LEVOTHYROXINE SODIUM
     Indication: Product used for unknown indication
     Dates: start: 202210
  3. LIOTHYRONINE [Concomitant]
     Active Substance: LIOTHYRONINE
     Indication: Product used for unknown indication
  4. Potassium cholride [Concomitant]
     Indication: Thyroid disorder

REACTIONS (5)
  - Palpitations [Recovered/Resolved]
  - Blood potassium decreased [Recovered/Resolved]
  - Glutathione increased [Unknown]
  - Heart rate irregular [Recovered/Resolved]
  - Blood thyroid stimulating hormone decreased [Recovered/Resolved]
